FAERS Safety Report 15509374 (Version 1)
Quarter: 2018Q4

REPORT INFORMATION
  Report Type: Spontaneous
  Country: US (occurrence: US)
  Receive Date: 20181010
  Receipt Date: 20181010
  Transmission Date: 20190205
  Serious: No
  Sender: FDA-Public Use
  Company Number: None

PATIENT
  Age: 6 Year
  Sex: Male

DRUGS (1)
  1. ORKAMBI [Suspect]
     Active Substance: IVACAFTOR\LUMACAFTOR
     Route: 048
     Dates: start: 201806

REACTIONS (3)
  - Infection [None]
  - Condition aggravated [None]
  - Cystic fibrosis [None]

NARRATIVE: CASE EVENT DATE: 20181006
